FAERS Safety Report 19171545 (Version 1)
Quarter: 2021Q2

REPORT INFORMATION
  Report Type: Spontaneous
  Country: US (occurrence: US)
  Receive Date: 20210422
  Receipt Date: 20210422
  Transmission Date: 20210717
  Serious: Yes (Hospitalization)
  Sender: FDA-Public Use
  Company Number: None

PATIENT
  Age: 78 Year
  Sex: Male

DRUGS (1)
  1. CARBAMAZEPINE (CARBAMAZEPINE 200MG TAB) [Suspect]
     Active Substance: CARBAMAZEPINE
     Indication: TRIGEMINAL NEURALGIA
     Dosage: ?          OTHER DOSE:2000?3200 MG;?
     Route: 048
     Dates: start: 19971010

REACTIONS (7)
  - Fall [None]
  - Encephalopathy [None]
  - Hyponatraemia [None]
  - Head injury [None]
  - Accidental overdose [None]
  - Pain [None]
  - Condition aggravated [None]

NARRATIVE: CASE EVENT DATE: 20200902
